FAERS Safety Report 21138593 (Version 4)
Quarter: 2022Q4

REPORT INFORMATION
  Report Type: Spontaneous
  Country: US (occurrence: US)
  Receive Date: 20220727
  Receipt Date: 20221219
  Transmission Date: 20230113
  Serious: Yes (Other)
  Sender: FDA-Public Use
  Company Number: US-BRISTOL-MYERS SQUIBB COMPANY-2022-080683

PATIENT
  Age: 36 Year
  Sex: Female

DRUGS (4)
  1. ZEPOSIA [Suspect]
     Active Substance: OZANIMOD HYDROCHLORIDE
     Indication: Multiple sclerosis
     Dosage: FREQ: 1 TIME A DAY FOR 4 DAYS
     Route: 048
     Dates: start: 202206
  2. ZEPOSIA [Suspect]
     Active Substance: OZANIMOD HYDROCHLORIDE
     Dosage: FREQ: 1 TIME A DAY FOR 3 DAYS
     Route: 048
     Dates: start: 202206
  3. ZEPOSIA [Suspect]
     Active Substance: OZANIMOD HYDROCHLORIDE
     Dosage: FREQ: 0.92 MG 1 TIME A DAY THEREAFTER.
     Route: 048
     Dates: start: 20220629
  4. ZEPOSIA [Suspect]
     Active Substance: OZANIMOD HYDROCHLORIDE
     Dosage: FREQ: 0.92 MG 1 TIME A DAY THEREAFTER.DAILY
     Route: 048
     Dates: start: 202207

REACTIONS (4)
  - Multiple sclerosis relapse [Unknown]
  - Bipolar disorder [Unknown]
  - Depression [Unknown]
  - Drug ineffective [Unknown]

NARRATIVE: CASE EVENT DATE: 20220701
